FAERS Safety Report 23508913 (Version 1)
Quarter: 2024Q1

REPORT INFORMATION
  Report Type: Report from Study
  Country: US (occurrence: US)
  Receive Date: 20240209
  Receipt Date: 20240209
  Transmission Date: 20240410
  Serious: Yes (Other)
  Sender: FDA-Public Use
  Company Number: US-ABBVIE-5497511

PATIENT
  Age: 61 Year
  Sex: Male
  Weight: 74 kg

DRUGS (2)
  1. HUMIRA [Suspect]
     Active Substance: ADALIMUMAB
     Indication: Eczema
     Dosage: FORM STRENGTH: 40MG CITRATE FREE
     Route: 058
     Dates: start: 20201103
  2. HUMIRA [Suspect]
     Active Substance: ADALIMUMAB
     Indication: Psoriasis

REACTIONS (6)
  - Osteoarthritis [Recovered/Resolved]
  - Osteoarthritis [Recovering/Resolving]
  - Arthropathy [Unknown]
  - Knee deformity [Unknown]
  - Chondropathy [Recovering/Resolving]
  - Chondropathy [Recovered/Resolved]

NARRATIVE: CASE EVENT DATE: 20201101
